FAERS Safety Report 9559100 (Version 1)
Quarter: 2013Q3

REPORT INFORMATION
  Report Type: Spontaneous
  Country: GB (occurrence: GB)
  Receive Date: 20130927
  Receipt Date: 20130927
  Transmission Date: 20140515
  Serious: Yes (Other)
  Sender: FDA-Public Use
  Company Number: GB-ROCHE-1281097

PATIENT
  Age: 62 Year
  Sex: Male

DRUGS (3)
  1. RIBAVIRIN [Suspect]
     Indication: HEPATITIS
     Route: 065
  2. INTERFERON ALFA-2A [Suspect]
     Indication: HEPATITIS
     Route: 065
  3. TELAPREVIR [Suspect]
     Indication: HEPATITIS
     Route: 065

REACTIONS (1)
  - Renal failure acute [Recovered/Resolved]
